FAERS Safety Report 19210644 (Version 1)
Quarter: 2021Q2

REPORT INFORMATION
  Report Type: Spontaneous
  Country: EE (occurrence: EE)
  Receive Date: 20210504
  Receipt Date: 20210504
  Transmission Date: 20210717
  Serious: Yes (Death, Hospitalization, Other)
  Sender: FDA-Public Use
  Company Number: EE-ORION CORPORATION ORION PHARMA-21_00014176

PATIENT
  Age: 73 Year
  Sex: Male

DRUGS (6)
  1. BETALOC ZOK [Concomitant]
     Active Substance: METOPROLOL SUCCINATE
     Indication: HYPERTENSION
     Dosage: STRENGTH: 25, 23.75 MG
     Route: 048
  2. HUMIRA [Suspect]
     Active Substance: ADALIMUMAB
     Indication: ANKYLOSING SPONDYLITIS
     Dosage: STRENGTH: 40 MG/0.4 ML CYCLICAL
     Route: 058
     Dates: start: 20070202
  3. ENALAPRIL;HYDROCHLOROTHIAZIDE [Concomitant]
     Active Substance: ENALAPRIL\HYDROCHLOROTHIAZIDE
     Indication: HYPERTENSION
     Dosage: STRENGTH:20 MG/12.5 MG
     Route: 048
  4. TREXAN (METHOTREXATE) [Suspect]
     Active Substance: METHOTREXATE SODIUM
     Indication: ANKYLOSING SPONDYLITIS
     Dosage: STRENGTH: 10 MG
     Route: 048
  5. TICAGRELOR MYLAN [Concomitant]
     Dosage: STRENGTH: 90 MG
     Route: 048
     Dates: start: 20001125
  6. MEDROL [Suspect]
     Active Substance: METHYLPREDNISOLONE
     Indication: ANKYLOSING SPONDYLITIS
     Dosage: STRENGTH: 4 MG
     Route: 048

REACTIONS (4)
  - COVID-19 [Fatal]
  - Acute myocardial infarction [Fatal]
  - Pneumonia [Fatal]
  - Product use in unapproved indication [Unknown]

NARRATIVE: CASE EVENT DATE: 20210320
